FAERS Safety Report 19684246 (Version 1)
Quarter: 2021Q3

REPORT INFORMATION
  Report Type: Spontaneous
  Country: US (occurrence: US)
  Receive Date: 20210810
  Receipt Date: 20210810
  Transmission Date: 20211014
  Serious: No
  Sender: FDA-Public Use
  Company Number: None

PATIENT
  Age: 59 Year
  Sex: Male
  Weight: 97.5 kg

DRUGS (1)
  1. REMDESIVIR. [Suspect]
     Active Substance: REMDESIVIR
     Indication: COVID-19
     Route: 042
     Dates: start: 20210809

REACTIONS (4)
  - Injection site pain [None]
  - Hyperhidrosis [None]
  - Muscle spasms [None]
  - Burning sensation [None]

NARRATIVE: CASE EVENT DATE: 20210809
